FAERS Safety Report 16628468 (Version 1)
Quarter: 2019Q3

REPORT INFORMATION
  Report Type: Spontaneous
  Country: US (occurrence: US)
  Receive Date: 20190612
  Receipt Date: 20190612
  Transmission Date: 20191004
  Serious: No
  Sender: FDA-Public Use
  Company Number: None

PATIENT
  Sex: Female

DRUGS (1)
  1. RASUVO [Suspect]
     Active Substance: METHOTREXATE SODIUM
     Dosage: ?          OTHER DOSE:17.5MG;?
     Route: 058
     Dates: start: 201903

REACTIONS (3)
  - Vomiting [None]
  - Mood altered [None]
  - Constipation [None]
